FAERS Safety Report 14552020 (Version 2)
Quarter: 2018Q1

REPORT INFORMATION
  Report Type: Spontaneous
  Country: US (occurrence: US)
  Receive Date: 20180220
  Receipt Date: 20180225
  Transmission Date: 20180509
  Serious: No
  Sender: FDA-Public Use
  Company Number: US-009507513-1802USA009092

PATIENT
  Age: 27 Year
  Sex: Female
  Weight: 58.05 kg

DRUGS (1)
  1. NEXPLANON [Suspect]
     Active Substance: ETONOGESTREL
     Indication: CONTRACEPTION
     Dosage: 1 DF, EVERY THREE YEARS
     Route: 059
     Dates: start: 20151228

REACTIONS (2)
  - Abdominal discomfort [Unknown]
  - Amenorrhoea [Unknown]

NARRATIVE: CASE EVENT DATE: 201702
